FAERS Safety Report 10066291 (Version 2)
Quarter: 2015Q2

REPORT INFORMATION
  Report Type: Spontaneous
  Country: US (occurrence: US)
  Receive Date: 20140408
  Receipt Date: 20150414
  Transmission Date: 20150821
  Serious: Yes (Death, Life-Threatening, Hospitalization, Other)
  Sender: FDA-Public Use
  Company Number: US-009507513-1404USA004125

PATIENT
  Sex: Female
  Weight: 81.63 kg

DRUGS (1)
  1. JANUMET [Suspect]
     Active Substance: METFORMIN HYDROCHLORIDE\SITAGLIPTIN PHOSPHATE
     Indication: TYPE 2 DIABETES MELLITUS
     Dosage: 1000/50MG, BID
     Route: 048
     Dates: start: 20080702, end: 20120106

REACTIONS (27)
  - Death [Fatal]
  - Musculoskeletal chest pain [Unknown]
  - Embolism arterial [Unknown]
  - Sarcoidosis [Unknown]
  - Cerebrovascular accident [Unknown]
  - Respiratory failure [Unknown]
  - Deep vein thrombosis [Unknown]
  - Hypertension [Unknown]
  - Haemorrhagic stroke [Unknown]
  - Acute kidney injury [Recovering/Resolving]
  - Migraine [Unknown]
  - Ischaemia [Unknown]
  - Electrolyte imbalance [Unknown]
  - Hyponatraemia [Unknown]
  - Splenic infarction [Unknown]
  - Gastrointestinal anastomotic leak [Unknown]
  - Pancreatic carcinoma metastatic [Unknown]
  - Leukocytosis [Unknown]
  - Mesenteric vascular occlusion [Unknown]
  - Acute myocardial infarction [Unknown]
  - Pulmonary embolism [Unknown]
  - Oesophagitis [Unknown]
  - Hypothyroidism [Unknown]
  - Hyperlipidaemia [Unknown]
  - Intestinal resection [Unknown]
  - Ischaemic stroke [Unknown]
  - Vena cava filter insertion [Unknown]

NARRATIVE: CASE EVENT DATE: 201204
